FAERS Safety Report 11166739 (Version 1)
Quarter: 2015Q2

REPORT INFORMATION
  Report Type: Spontaneous
  Country: US (occurrence: None)
  Receive Date: 20150604
  Receipt Date: 20150604
  Transmission Date: 20150821
  Serious: Yes (Death, Hospitalization)
  Sender: FDA-Public Use
  Company Number: None

PATIENT
  Age: 13 Year
  Sex: Female
  Weight: 32.6 kg

DRUGS (3)
  1. PEG-L-ASPARAGINASE (K-H) [Suspect]
     Active Substance: PEGASPARGASE
     Dosage: 8550 MILLION IU
     Dates: end: 20100325
  2. PREDNISONE. [Suspect]
     Active Substance: PREDNISONE
     Dates: end: 20100328
  3. DOXORUBICIN HYDROCHLORIDE. [Suspect]
     Active Substance: DOXORUBICIN HYDROCHLORIDE
     Dates: end: 20100311

REACTIONS (5)
  - Neutrophil count decreased [None]
  - Bacterial sepsis [None]
  - Platelet count decreased [None]
  - Apnoea [None]
  - Cardiac arrest [None]

NARRATIVE: CASE EVENT DATE: 20100329
